FAERS Safety Report 6336161-7 (Version None)
Quarter: 2009Q3

REPORT INFORMATION
  Report Type: 
  Country: None (occurrence: None)
  Receive Date: 20090831
  Receipt Date: 20090831
  Transmission Date: 20100115
  Serious: Yes (Death)
  Sender: FDA-Public Use
  Company Number: None

PATIENT
  Sex: Male

DRUGS (5)
  1. REVLIMID [Suspect]
     Indication: MULTIPLE MYELOMA
     Dosage: REVLIMID 15MG DAILY X21D ON, 7D OFF ORAL
     Route: 048
     Dates: start: 20071001, end: 20080101
  2. DEXAMETHASONE [Concomitant]
  3. VELCADE [Concomitant]
  4. OMEPRAZOLE [Concomitant]
  5. PROCHLORPERAZINE [Concomitant]

REACTIONS (3)
  - DECREASED APPETITE [None]
  - DISEASE PROGRESSION [None]
  - NAUSEA [None]
